FAERS Safety Report 7089875-8 (Version None)
Quarter: 2010Q4

REPORT INFORMATION
  Report Type: 
  Country: None (occurrence: None)
  Receive Date: 20101108
  Receipt Date: 20101026
  Transmission Date: 20110411
  Serious: Yes (Hospitalization)
  Sender: FDA-Public Use
  Company Number: GB-AMGEN-GBRSP2010001832

PATIENT

DRUGS (1)
  1. ENBREL [Suspect]
     Indication: RHEUMATOID ARTHRITIS
     Dosage: 50 MG FREQUENCY UNKNOWN
     Dates: start: 20000101, end: 20100101

REACTIONS (2)
  - RHEUMATOID VASCULITIS [None]
  - ULCERATIVE KERATITIS [None]
